FAERS Safety Report 5739044-6 (Version None)
Quarter: 2008Q2

REPORT INFORMATION
  Report Type: 
  Country: None (occurrence: None)
  Receive Date: 20080515
  Receipt Date: 20080506
  Transmission Date: 20081010
  Serious: Yes (Hospitalization)
  Sender: FDA-Public Use
  Company Number: PR-ABBOTT-08P-131-0450811-00

PATIENT
  Age: 13 Year
  Sex: Male

DRUGS (4)
  1. HUMIRA [Suspect]
     Indication: CROHN'S DISEASE
     Route: 058
  2. MESALAMINE [Concomitant]
     Indication: CROHN'S DISEASE
     Route: 048
  3. LANSOPRAZOLE [Concomitant]
     Indication: ULCER
     Route: 048
  4. AZATHIOPRINE [Concomitant]
     Indication: CROHN'S DISEASE
     Route: 048

REACTIONS (4)
  - DIARRHOEA [None]
  - GASTROINTESTINAL DISORDER [None]
  - PYREXIA [None]
  - RED BLOOD CELL SEDIMENTATION RATE INCREASED [None]
